FAERS Safety Report 8112773-5 (Version None)
Quarter: 2012Q1

REPORT INFORMATION
  Report Type: 
  Country: None (occurrence: None)
  Receive Date: 20120203
  Receipt Date: 20120131
  Transmission Date: 20120608
  Serious: Yes (Other)
  Sender: FDA-Public Use
  Company Number: GR-GLAXOSMITHKLINE-B0779035A

PATIENT
  Age: 61 Year
  Sex: Female
  Weight: 69 kg

DRUGS (2)
  1. LIPITOR [Concomitant]
     Indication: HYPERCHOLESTEROLAEMIA
     Dosage: 10MG PER DAY
     Route: 048
  2. ALLI [Suspect]
     Indication: WEIGHT DECREASED
     Dosage: 180MG PER DAY
     Route: 048

REACTIONS (2)
  - DRUG ABUSE [None]
  - DRUG INEFFECTIVE [None]
